FAERS Safety Report 16905624 (Version 2)
Quarter: 2019Q4

REPORT INFORMATION
  Report Type: Spontaneous
  Country: US (occurrence: US)
  Receive Date: 20191010
  Receipt Date: 20191021
  Transmission Date: 20200122
  Serious: Yes (Other)
  Sender: FDA-Public Use
  Company Number: US-MYLANLABS-2019M1094827

PATIENT
  Sex: Male
  Weight: 95.23 kg

DRUGS (1)
  1. DEXAMETHASONE SODIUM PHOSPHATE INJECTION USP [Suspect]
     Active Substance: DEXAMETHASONE SODIUM PHOSPHATE
     Indication: ADRENAL INSUFFICIENCY
     Dosage: 1 MILLIGRAM

REACTIONS (1)
  - Drug ineffective [Not Recovered/Not Resolved]
